FAERS Safety Report 6646858-7 (Version None)
Quarter: 2010Q1

REPORT INFORMATION
  Report Type: 
  Country: None (occurrence: None)
  Receive Date: 20100323
  Receipt Date: 20100311
  Transmission Date: 20100710
  Serious: Yes (Other)
  Sender: FDA-Public Use
  Company Number: US-PFIZER INC-2010013011

PATIENT
  Sex: Male
  Weight: 67.12 kg

DRUGS (7)
  1. LYRICA [Suspect]
     Indication: NEUROPATHY PERIPHERAL
     Dosage: 250 MG, 3X/DAY
     Route: 048
     Dates: start: 20060101
  2. NEURONTIN [Suspect]
     Indication: NEUROPATHY PERIPHERAL
     Dosage: 300 MG, 3X/DAY
     Dates: start: 20100115, end: 20100122
  3. NORVASC [Concomitant]
  4. CARDURA [Concomitant]
  5. ATENOLOL [Concomitant]
  6. ALLEGRA [Concomitant]
  7. NEXIUM [Concomitant]

REACTIONS (3)
  - BLOOD CREATINE PHOSPHOKINASE INCREASED [None]
  - MUSCLE SPASMS [None]
  - OEDEMA [None]
